FAERS Safety Report 11170879 (Version 1)
Quarter: 2015Q2

REPORT INFORMATION
  Report Type: Spontaneous
  Country: US (occurrence: None)
  Receive Date: 20150515
  Receipt Date: 20150515
  Transmission Date: 20150821
  Serious: Yes (Other)
  Sender: FDA-Public Use
  Company Number: 2014012761

PATIENT
  Age: 52 Year
  Sex: Female
  Weight: 86.1 kg

DRUGS (7)
  1. IMURAN [Concomitant]
     Active Substance: AZATHIOPRINE
  2. COREG [Concomitant]
     Active Substance: CARVEDILOL
  3. CIMZIA [Suspect]
     Active Substance: CERTOLIZUMAB PEGOL
     Indication: CROHN^S DISEASE
     Dates: end: 2014
  4. SPIRONOLACTONE. [Concomitant]
     Active Substance: SPIRONOLACTONE
  5. LASIX [Concomitant]
     Active Substance: FUROSEMIDE
  6. ARTANE [Concomitant]
     Active Substance: TRIHEXYPHENIDYL HYDROCHLORIDE
  7. BOTOX (BOTULINUM TOXIN TYPE A) [Concomitant]

REACTIONS (1)
  - Sinusitis [None]

NARRATIVE: CASE EVENT DATE: 201409
